FAERS Safety Report 6673006-X (Version None)
Quarter: 2010Q2

REPORT INFORMATION
  Report Type: 
  Country: None (occurrence: None)
  Receive Date: 20100408
  Receipt Date: 20100331
  Transmission Date: 20101027
  Serious: Yes (Hospitalization)
  Sender: FDA-Public Use
  Company Number: B0644126A

PATIENT
  Sex: Male

DRUGS (6)
  1. ZOPHREN [Suspect]
     Indication: PREMEDICATION
     Dosage: 8MG PER DAY
     Route: 042
     Dates: start: 20100223, end: 20100223
  2. OXALIPLATINE [Suspect]
     Dosage: 130MG PER DAY
     Route: 042
     Dates: start: 20100223, end: 20100223
  3. TOMUDEX [Suspect]
     Dosage: 6MG PER DAY
     Route: 042
     Dates: start: 20100223, end: 20100223
  4. MAGNESIUM SULFATE [Suspect]
     Dosage: 1G PER DAY
     Route: 042
     Dates: start: 20100223, end: 20100223
  5. CALCIUM GLUCONATE [Suspect]
     Dosage: 1G PER DAY
     Route: 042
     Dates: start: 20100223, end: 20100223
  6. SOLU-MEDROL [Suspect]
     Dosage: 80MG PER DAY
     Route: 042
     Dates: start: 20100223, end: 20100223

REACTIONS (10)
  - ABDOMINAL PAIN [None]
  - FAECAL VOLUME INCREASED [None]
  - HEPATIC ENZYME INCREASED [None]
  - HOT FLUSH [None]
  - HYPERHIDROSIS [None]
  - INFLAMMATION [None]
  - MALAISE [None]
  - PALLOR [None]
  - PYREXIA [None]
  - RENAL IMPAIRMENT [None]
